FAERS Safety Report 17809202 (Version 1)
Quarter: 2020Q2

REPORT INFORMATION
  Report Type: Spontaneous
  Country: CY (occurrence: CY)
  Receive Date: 20200520
  Receipt Date: 20200520
  Transmission Date: 20200714
  Serious: Yes (Other)
  Sender: FDA-Public Use
  Company Number: CY-SAKK-2019SA023683AA

PATIENT
  Age: 63 Year
  Sex: Male

DRUGS (2)
  1. CABAZITAXEL [Suspect]
     Active Substance: CABAZITAXEL
     Indication: PROSTATE CANCER
     Dosage: UNK UNK, QCY
     Dates: start: 201610, end: 201610
  2. CABAZITAXEL [Suspect]
     Active Substance: CABAZITAXEL
     Indication: METASTASIS
     Dosage: UNK, QCY
     Dates: start: 201709, end: 201709

REACTIONS (3)
  - Blindness [Unknown]
  - Optic atrophy [Unknown]
  - Neuropathy peripheral [Unknown]
